FAERS Safety Report 13179016 (Version 6)
Quarter: 2017Q4

REPORT INFORMATION
  Report Type: Report from Study
  Country: HU (occurrence: HU)
  Receive Date: 20170202
  Receipt Date: 20171204
  Transmission Date: 20180320
  Serious: Yes (Hospitalization)
  Sender: FDA-Public Use
  Company Number: HU-ROCHE-1868534

PATIENT
  Age: 67 Year
  Sex: Male

DRUGS (3)
  1. ZELBORAF [Suspect]
     Active Substance: VEMURAFENIB
     Indication: METASTATIC MALIGNANT MELANOMA
     Route: 048
     Dates: start: 20161123
  2. COTELLIC [Suspect]
     Active Substance: COBIMETINIB
     Indication: METASTATIC MALIGNANT MELANOMA
     Route: 048
     Dates: start: 20161123, end: 20161221
  3. COTELLIC [Suspect]
     Active Substance: COBIMETINIB
     Route: 048
     Dates: start: 20170107, end: 20170118

REACTIONS (17)
  - Acrochordon [Unknown]
  - Photosensitivity reaction [Recovered/Resolved]
  - Acne [Unknown]
  - Vision blurred [Recovered/Resolved]
  - Cough [Unknown]
  - Sunburn [Recovered/Resolved]
  - Nausea [Recovered/Resolved]
  - Decreased appetite [Not Recovered/Not Resolved]
  - Alopecia [Recovered/Resolved]
  - Hyperkeratosis [Not Recovered/Not Resolved]
  - Hyperkeratosis [Recovered/Resolved]
  - Skin lesion [Unknown]
  - Arthralgia [Recovered/Resolved]
  - Retinopathy [Recovered/Resolved]
  - Rash [Not Recovered/Not Resolved]
  - Muscle spasms [Not Recovered/Not Resolved]
  - Fatigue [Recovered/Resolved]

NARRATIVE: CASE EVENT DATE: 201612
